FAERS Safety Report 9891898 (Version 1)
Quarter: 2014Q1

REPORT INFORMATION
  Report Type: Spontaneous
  Country: US (occurrence: US)
  Receive Date: 20140212
  Receipt Date: 20140212
  Transmission Date: 20141002
  Serious: Yes (Other)
  Sender: FDA-Public Use
  Company Number: US-TEVA-461980USA

PATIENT
  Age: 42 Year
  Sex: Female

DRUGS (1)
  1. AMPHETAMINE W/DEXTROAMPHETAMINE [Suspect]
     Indication: BIPOLAR DISORDER

REACTIONS (4)
  - Suicidal ideation [Unknown]
  - Mania [Unknown]
  - Depression [Unknown]
  - Anxiety [Unknown]
